FAERS Safety Report 6043377-6 (Version None)
Quarter: 2009Q1

REPORT INFORMATION
  Report Type: 
  Country: None (occurrence: None)
  Receive Date: 20090115
  Receipt Date: 20090102
  Transmission Date: 20090719
  Serious: Yes (Death)
  Sender: FDA-Public Use
  Company Number: KV200900066

PATIENT
  Age: 19 Year
  Sex: Female

DRUGS (3)
  1. MORPHINE SULFATE [Suspect]
     Indication: PAIN
     Dosage: 30 MG, Q4H, PRN, ORAL
     Route: 048
     Dates: start: 20070101, end: 20080425
  2. PHENERGAN /00033001/ (PROMETHAZINE) [Concomitant]
  3. FENTANYL /00174602/ (FENTANYL CITRATE) [Concomitant]

REACTIONS (10)
  - AIDS RELATED COMPLICATION [None]
  - ANHEDONIA [None]
  - ARTHRALGIA [None]
  - ASTHENIA [None]
  - BONE PAIN [None]
  - DECREASED APPETITE [None]
  - FEELING ABNORMAL [None]
  - OPPORTUNISTIC INFECTION [None]
  - PRODUCT QUALITY ISSUE [None]
  - WEIGHT DECREASED [None]
